FAERS Safety Report 10364426 (Version 1)
Quarter: 2014Q3

REPORT INFORMATION
  Report Type: Spontaneous
  Country: US (occurrence: None)
  Receive Date: 20140801
  Receipt Date: 20140801
  Transmission Date: 20150326
  Serious: Yes (Other)
  Sender: FDA-Public Use
  Company Number: 2014RT000083

PATIENT
  Age: 43 Year
  Sex: Female

DRUGS (14)
  1. OXYCONTIN [Suspect]
     Active Substance: OXYCODONE HYDROCHLORIDE
  2. MIDAZOLAM HYDROCHLORIDE. [Concomitant]
     Active Substance: MIDAZOLAM HYDROCHLORIDE
  3. PERCOCET (OXYCODONE HYDROCHLORIDE, OXYCODONE TEREPHTHALATE, PARACETAMOL) [Concomitant]
  4. TOPROL (METOPROLOL SUCCINATE) [Concomitant]
  5. SIMVASTATIN. [Concomitant]
     Active Substance: SIMVASTATIN
  6. OXYCODONE HYDROCHLORIDE. [Concomitant]
     Active Substance: OXYCODONE HYDROCHLORIDE
  7. TACROLIMUS. [Concomitant]
     Active Substance: TACROLIMUS
  8. GEMFIBROZIL. [Concomitant]
     Active Substance: GEMFIBROZIL
  9. AZITHROMYCIN (AZITHROMYCIN DIHYDRATE) [Concomitant]
  10. PREDNISONE. [Concomitant]
     Active Substance: PREDNISONE
  11. PROCYSBI DELAYED-RELEASE [Suspect]
     Active Substance: CYSTEAMINE BITARTRATE
     Indication: PRODUCT USED FOR UNKNOWN INDICATION
  12. CYSTARAN [Suspect]
     Active Substance: CYSTEAMINE HYDROCHLORIDE
     Indication: AMINO ACID METABOLISM DISORDER
     Dosage: 1 GTT, EVERY WAKING HOUR, OPHTHALMIC
     Dates: start: 20140119
  13. MORPHINE SULFATE. [Concomitant]
     Active Substance: MORPHINE SULFATE
  14. HYDROCODONE BITARTRATE [Concomitant]
     Active Substance: HYDROCODONE BITARTRATE

REACTIONS (1)
  - Nephropathy toxic [None]

NARRATIVE: CASE EVENT DATE: 201406
